FAERS Safety Report 5056369-0 (Version None)
Quarter: 2006Q3

REPORT INFORMATION
  Report Type: 
  Country: None (occurrence: None)
  Receive Date: 20060717
  Receipt Date: 20060704
  Transmission Date: 20061208
  Serious: Yes (Hospitalization)
  Sender: FDA-Public Use
  Company Number: 056-C5013-06070018

PATIENT
  Age: 71 Year
  Sex: Female

DRUGS (1)
  1. CC-5013 (LENALIDOMIDE) [Suspect]
     Indication: MULTIPLE MYELOMA
     Dosage: 25 MG, 1 IN 1 D, ORAL
     Route: 048
     Dates: start: 20060621, end: 20060627

REACTIONS (2)
  - ANGIONEUROTIC OEDEMA [None]
  - THROMBOCYTOPENIA [None]
